FAERS Safety Report 16340520 (Version 1)
Quarter: 2019Q2

REPORT INFORMATION
  Report Type: Spontaneous
  Country: CA (occurrence: CA)
  Receive Date: 20190522
  Receipt Date: 20190522
  Transmission Date: 20190711
  Serious: Yes (Other)
  Sender: FDA-Public Use
  Company Number: CA-AUROBINDO-AUR-APL-2019-027576

PATIENT

DRUGS (2)
  1. QUETIAPINE FILM-COATED TABLET [Suspect]
     Active Substance: QUETIAPINE
     Dosage: 75.0 MILLIGRAM, 3 TIMES A DAY
     Route: 048
  2. QUETIAPINE FILM-COATED TABLET [Suspect]
     Active Substance: QUETIAPINE
     Indication: SLEEP DISORDER
     Dosage: UNK
     Route: 065

REACTIONS (8)
  - Malaise [Unknown]
  - Hyperhidrosis [Unknown]
  - Depression [Unknown]
  - Head discomfort [Unknown]
  - Movement disorder [Unknown]
  - Dyskinesia [Unknown]
  - Insomnia [Unknown]
  - Musculoskeletal stiffness [Unknown]
